FAERS Safety Report 15089042 (Version 2)
Quarter: 2018Q3

REPORT INFORMATION
  Report Type: Spontaneous
  Country: US (occurrence: US)
  Receive Date: 20180629
  Receipt Date: 20180929
  Transmission Date: 20181010
  Serious: Yes (Other)
  Sender: FDA-Public Use
  Company Number: US-SA-2018SA169961

PATIENT
  Age: 49 Year
  Sex: Female
  Weight: 88.45 kg

DRUGS (2)
  1. TAXOTERE [Suspect]
     Active Substance: DOCETAXEL
     Dosage: UNK, Q3W
     Route: 042
     Dates: start: 20061110, end: 20061110
  2. TAXOTERE [Suspect]
     Active Substance: DOCETAXEL
     Indication: INVASIVE DUCTAL BREAST CARCINOMA
     Dosage: UNK, Q3W
     Route: 042
     Dates: start: 20060810, end: 20060810

REACTIONS (2)
  - Alopecia [Recovering/Resolving]
  - Psychological trauma [Unknown]

NARRATIVE: CASE EVENT DATE: 201608
